FAERS Safety Report 8173774-4 (Version None)
Quarter: 2012Q1

REPORT INFORMATION
  Report Type: 
  Country: None (occurrence: None)
  Receive Date: 20120227
  Receipt Date: 20120215
  Transmission Date: 20120608
  Serious: Yes (Death, Hospitalization)
  Sender: FDA-Public Use
  Company Number: 130057

PATIENT
  Age: 38 Year
  Sex: Female

DRUGS (1)
  1. CISPLATIN [Suspect]
     Indication: OESOPHAGEAL CARCINOMA
     Dosage: UNK

REACTIONS (8)
  - PYREXIA [None]
  - FAT EMBOLISM [None]
  - FISTULA [None]
  - GRAND MAL CONVULSION [None]
  - BRAIN OEDEMA [None]
  - CONFUSIONAL STATE [None]
  - INTRACRANIAL PRESSURE INCREASED [None]
  - HAEMATEMESIS [None]
